FAERS Safety Report 5105743-2 (Version None)
Quarter: 2006Q3

REPORT INFORMATION
  Report Type: 
  Country: None (occurrence: None)
  Receive Date: 20060915
  Receipt Date: 20060905
  Transmission Date: 20061208
  Serious: Yes (Death)
  Sender: FDA-Public Use
  Company Number: US-JNJFOC-20060902124

PATIENT
  Age: 66 Year
  Sex: Male

DRUGS (3)
  1. ACETAMINOPHEN [Suspect]
     Route: 048
  2. ACETAMINOPHEN [Suspect]
     Indication: SUICIDE ATTEMPT
     Route: 048
  3. ETHANOL [Suspect]
     Indication: SUICIDE ATTEMPT
     Route: 048

REACTIONS (17)
  - ACTIVATED PARTIAL THROMBOPLASTIN TIME PROLONGED [None]
  - ALANINE AMINOTRANSFERASE INCREASED [None]
  - ASPARTATE AMINOTRANSFERASE INCREASED [None]
  - BLOOD CREATINE PHOSPHOKINASE INCREASED [None]
  - BLOOD LACTATE DEHYDROGENASE INCREASED [None]
  - BLOOD PH DECREASED [None]
  - BRAIN HERNIATION [None]
  - COMPLETED SUICIDE [None]
  - GASTROINTESTINAL HAEMORRHAGE [None]
  - HEPATIC FUNCTION ABNORMAL [None]
  - HYPOTENSION [None]
  - LOSS OF CONSCIOUSNESS [None]
  - MULTIPLE DRUG OVERDOSE INTENTIONAL [None]
  - MYOGLOBIN BLOOD INCREASED [None]
  - PANCREATITIS [None]
  - PROTHROMBIN TIME PROLONGED [None]
  - RESPIRATORY FAILURE [None]
